FAERS Safety Report 23981396 (Version 1)
Quarter: 2024Q2

REPORT INFORMATION
  Report Type: Spontaneous
  Country: US (occurrence: None)
  Receive Date: 20240614
  Receipt Date: 20240614
  Transmission Date: 20240716
  Serious: Yes (Hospitalization)
  Sender: FDA-Public Use
  Company Number: None

PATIENT
  Age: 62 Year
  Sex: Female
  Weight: 62.1 kg

DRUGS (8)
  1. VEOZAH [Suspect]
     Active Substance: FEZOLINETANT
     Indication: Circulatory collapse
     Dosage: 1 TABLET DAILY
     Dates: start: 20240603, end: 20240614
  2. REPATHA [Concomitant]
     Active Substance: EVOLOCUMAB
  3. PANTOPRAZOLE [Concomitant]
     Active Substance: PANTOPRAZOLE
  4. TIZANIDINE [Concomitant]
     Active Substance: TIZANIDINE
  5. METFORMIN HYDROCHLORIDE [Concomitant]
     Active Substance: METFORMIN HYDROCHLORIDE
  6. EFFEXOR XR [Concomitant]
     Active Substance: VENLAFAXINE HYDROCHLORIDE
  7. MVI FISH OIL [Concomitant]
  8. PROBIOTIC [Concomitant]

REACTIONS (7)
  - Dyspnoea [None]
  - Dizziness [None]
  - Loss of consciousness [None]
  - Tremor [None]
  - Tachycardia [None]
  - Disease recurrence [None]
  - Vertigo [None]

NARRATIVE: CASE EVENT DATE: 20240612
